FAERS Safety Report 5420775-2 (Version None)
Quarter: 2007Q3

REPORT INFORMATION
  Report Type: 
  Country: None (occurrence: None)
  Receive Date: 20070816
  Receipt Date: 20070731
  Transmission Date: 20080115
  Serious: Yes (Hospitalization)
  Sender: FDA-Public Use
  Company Number: 2007001414

PATIENT
  Age: 70 Year
  Sex: Female
  Weight: 53 kg

DRUGS (11)
  1. ERLOTINIB (TABLET) [Suspect]
     Indication: NON-SMALL CELL LUNG CANCER
     Dosage: 150 MG (QD),ORAL
     Route: 048
     Dates: start: 20070521
  2. PEMETREXED (PEMETREXED) (INJECTION FOR INFUSION) [Suspect]
     Indication: NON-SMALL CELL LUNG CANCER
     Dosage: 500 MG/M^2,INTRAVENOUS
     Route: 042
     Dates: start: 20070521
  3. THEOPHYLLINE [Concomitant]
  4. SALBUTEROL [Concomitant]
  5. SPIRIVA [Concomitant]
  6. FLUTICASONE PROPIONATE [Concomitant]
  7. FOLIC ACID [Concomitant]
  8. VITAMIN B12 [Concomitant]
  9. DEXAMETHASONE TAB [Concomitant]
  10. TIOTROPIUM [Concomitant]
  11. VARENICLINE [Concomitant]

REACTIONS (6)
  - ABDOMINAL PAIN [None]
  - BODY TEMPERATURE INCREASED [None]
  - BRONCHITIS [None]
  - DIARRHOEA [None]
  - NEPHROLITHIASIS [None]
  - VIRAL INFECTION [None]
